FAERS Safety Report 8423690-5 (Version None)
Quarter: 2012Q2

REPORT INFORMATION
  Report Type: 
  Country: None (occurrence: None)
  Receive Date: 20120608
  Receipt Date: 20120209
  Transmission Date: 20120825
  Serious: No
  Sender: FDA-Public Use
  Company Number: US-ASTRAZENECA-2012SE08878

PATIENT
  Age: 76 Year
  Sex: Male
  Weight: 84.4 kg

DRUGS (6)
  1. SYMBICORT [Concomitant]
  2. NEXIUM [Concomitant]
  3. METOPROLOL SUCCINATE [Suspect]
     Route: 048
  4. CRESTOR [Concomitant]
  5. ATACAND [Suspect]
     Indication: BLOOD PRESSURE ABNORMAL
     Route: 048
  6. ATACAND HCT [Suspect]
     Indication: BLOOD PRESSURE ABNORMAL
     Dosage: 16-12.5 MG DAILY
     Route: 048

REACTIONS (4)
  - HYPERTENSION [None]
  - SELF-MEDICATION [None]
  - COUGH [None]
  - DRUG INEFFECTIVE [None]
